FAERS Safety Report 9602286 (Version 2)
Quarter: 2013Q4

REPORT INFORMATION
  Report Type: Spontaneous
  Country: NZ (occurrence: NZ)
  Receive Date: 20131007
  Receipt Date: 20131014
  Transmission Date: 20140711
  Serious: Yes (Death, Hospitalization)
  Sender: FDA-Public Use
  Company Number: NZ-ELI_LILLY_AND_COMPANY-NZ201309008290

PATIENT
  Sex: Male

DRUGS (3)
  1. ZYPREXA [Suspect]
     Dosage: 5 MG, PRN
     Route: 048
  2. ZYPREXA [Suspect]
     Dosage: 10 MG, PRN
     Route: 048
  3. CLOZAPINE [Suspect]
     Dosage: 2 MG, PRN
     Route: 065

REACTIONS (1)
  - Pneumonia [Fatal]
